FAERS Safety Report 8087252-4 (Version None)
Quarter: 2012Q1

REPORT INFORMATION
  Report Type: 
  Country: None (occurrence: None)
  Receive Date: 20120128
  Receipt Date: 20110515
  Transmission Date: 20120608
  Serious: No
  Sender: FDA-Public Use
  Company Number: US-ABBOTT-11P-163-0725822-00

PATIENT
  Age: 59 Year
  Sex: Male

DRUGS (1)
  1. HUMIRA [Suspect]
     Indication: PSORIASIS
     Dosage: STARTING DOSE
     Dates: start: 20110510

REACTIONS (4)
  - INCORRECT DOSE ADMINISTERED [None]
  - NAUSEA [None]
  - PRESYNCOPE [None]
  - DIZZINESS [None]
